FAERS Safety Report 25612630 (Version 1)
Quarter: 2025Q3

REPORT INFORMATION
  Report Type: Spontaneous
  Country: CA (occurrence: CA)
  Receive Date: 20250728
  Receipt Date: 20250728
  Transmission Date: 20251020
  Serious: Yes (Other)
  Sender: DAIICHI
  Company Number: CA-ASTRAZENECA-202507CAN011203CA

PATIENT
  Sex: Female

DRUGS (1)
  1. TRASTUZUMAB DERUXTECAN [Suspect]
     Active Substance: TRASTUZUMAB DERUXTECAN
     Indication: Breast cancer metastatic
     Dosage: 370 MG, ONCE EVERY 3 WK
     Route: 042

REACTIONS (19)
  - Blood albumin decreased [Unknown]
  - Blood calcium decreased [Unknown]
  - Blood chloride increased [Unknown]
  - Blood lactate dehydrogenase increased [Unknown]
  - Blood urea decreased [Unknown]
  - Constipation [Unknown]
  - Cystitis [Unknown]
  - Haematocrit decreased [Unknown]
  - Haemoglobin decreased [Unknown]
  - Incontinence [Unknown]
  - Kidney fibrosis [Unknown]
  - Lymphocyte count decreased [Unknown]
  - Pelvi-ureteric obstruction [Unknown]
  - Protein total decreased [Unknown]
  - Radiation fibrosis [Unknown]
  - Red blood cell count decreased [Unknown]
  - Red cell distribution width increased [Unknown]
  - Urinary tract infection [Unknown]
  - White blood cell count decreased [Unknown]
